FAERS Safety Report 16045133 (Version 1)
Quarter: 2019Q1

REPORT INFORMATION
  Report Type: Spontaneous
  Country: US (occurrence: US)
  Receive Date: 20190307
  Receipt Date: 20190307
  Transmission Date: 20190418
  Serious: Yes (Other)
  Sender: FDA-Public Use
  Company Number: US-INGENUS PHARMACEUTICALS, LLC-INF201902-000135

PATIENT
  Age: 68 Year
  Sex: Male

DRUGS (4)
  1. FLUOROURACIL. [Suspect]
     Active Substance: FLUOROURACIL
     Indication: OESOPHAGEAL ADENOCARCINOMA
     Dosage: 400 MG/M^2 BOLUS, 2,400 MG/M^2 46-HOUR CONTINUOUS INFUSION
  2. LEUCOVORIN CALCIUM. [Suspect]
     Active Substance: LEUCOVORIN CALCIUM
     Indication: OESOPHAGEAL ADENOCARCINOMA
     Dosage: 400 MG/M^2
     Route: 042
  3. OXALIPLATIN. [Suspect]
     Active Substance: OXALIPLATIN
     Indication: OESOPHAGEAL ADENOCARCINOMA
  4. IRINOTECAN [Suspect]
     Active Substance: IRINOTECAN
     Indication: OESOPHAGEAL ADENOCARCINOMA
     Dosage: 180 MG/M^2
     Route: 042

REACTIONS (4)
  - Leukoencephalopathy [Recovering/Resolving]
  - Diarrhoea [Recovering/Resolving]
  - Nausea [Recovering/Resolving]
  - Neurotoxicity [Unknown]
